FAERS Safety Report 4673433-6 (Version None)
Quarter: 2005Q2

REPORT INFORMATION
  Report Type: 
  Country: None (occurrence: None)
  Receive Date: 20050525
  Receipt Date: 20050516
  Transmission Date: 20051028
  Serious: Yes (Other)
  Sender: FDA-Public Use
  Company Number: US-GLAXOSMITHKLINE-A0559657A

PATIENT

DRUGS (2)
  1. LAMICTAL [Suspect]
  2. FOLATE [Concomitant]

REACTIONS (5)
  - CYSTIC LYMPHANGIOMA [None]
  - DRUG EXPOSURE DURING PREGNANCY [None]
  - HAEMANGIOMA [None]
  - MASS [None]
  - SKIN LESION [None]
